FAERS Safety Report 6467170-5 (Version None)
Quarter: 2009Q4

REPORT INFORMATION
  Report Type: 
  Country: None (occurrence: None)
  Receive Date: 20091127
  Receipt Date: 20091112
  Transmission Date: 20100525
  Serious: Yes (Other)
  Sender: FDA-Public Use
  Company Number: MPS1-1000281

PATIENT
  Age: 2 Year
  Sex: Female
  Weight: 13 kg

DRUGS (1)
  1. ALDURAZYME [Suspect]
     Indication: MUCOPOLYSACCHARIDOSIS
     Dates: start: 20090903

REACTIONS (6)
  - CHILLS [None]
  - CYANOSIS [None]
  - HYPERSENSITIVITY [None]
  - HYPERTENSION [None]
  - INFUSION RELATED REACTION [None]
  - PALLOR [None]
